FAERS Safety Report 4471596-9 (Version None)
Quarter: 2004Q4

REPORT INFORMATION
  Report Type: 
  Country: None (occurrence: None)
  Receive Date: 20041012
  Receipt Date: 20040929
  Transmission Date: 20050328
  Serious: Yes (Hospitalization)
  Sender: FDA-Public Use
  Company Number: FR-GLAXOSMITHKLINE-B0347322A

PATIENT
  Age: 69 Year
  Sex: Male

DRUGS (4)
  1. AZANTAC [Suspect]
     Dosage: 300MG PER DAY
     Route: 048
     Dates: start: 20040530, end: 20040825
  2. IMUREL [Suspect]
     Indication: RENAL TRANSPLANT
     Route: 048
     Dates: start: 20040530
  3. BACTRIM DS [Suspect]
     Route: 048
     Dates: start: 20040530, end: 20040825
  4. CYMEVAN [Suspect]
     Dosage: 250MG TWICE PER DAY
     Route: 048
     Dates: start: 20040530, end: 20040827

REACTIONS (3)
  - LEUKOPENIA [None]
  - MACROCYTOSIS [None]
  - NEUTROPENIA [None]
